FAERS Safety Report 7226722-5 (Version None)
Quarter: 2011Q1

REPORT INFORMATION
  Report Type: 
  Country: None (occurrence: None)
  Receive Date: 20110105
  Receipt Date: 20101220
  Transmission Date: 20110831
  Serious: Yes (Life-Threatening)
  Sender: FDA-Public Use
  Company Number: 10-581

PATIENT
  Age: 43 Year
  Sex: Female

DRUGS (3)
  1. PARACETAMOL [Suspect]
     Dosage: 1 G ORAL
     Route: 048
  2. IBUPROFEN [Suspect]
     Indication: CHEST PAIN
     Dosage: 200 MG ORAL
     Route: 048
     Dates: start: 20100801, end: 20101029
  3. IBUPROFEN [Suspect]
     Indication: ABDOMINAL PAIN UPPER
     Dosage: 200 MG ORAL
     Route: 048
     Dates: start: 20100801, end: 20101029

REACTIONS (2)
  - GASTRIC HAEMORRHAGE [None]
  - DUODENAL ULCER PERFORATION [None]
